FAERS Safety Report 6219028-4 (Version None)
Quarter: 2009Q2

REPORT INFORMATION
  Report Type: 
  Country: None (occurrence: None)
  Receive Date: 20090608
  Receipt Date: 20090527
  Transmission Date: 20091009
  Serious: Yes (Hospitalization)
  Sender: FDA-Public Use
  Company Number: US-PFIZER INC-2009181460

PATIENT
  Sex: Female
  Weight: 138 kg

DRUGS (16)
  1. NAPROXEN [Suspect]
     Indication: OSTEOARTHRITIS
     Dosage: UNK, EVERY DAY
     Route: 048
     Dates: start: 20071024
  2. BLINDED *PLACEBO [Suspect]
     Indication: OSTEOARTHRITIS
     Dosage: UNK, EVERY DAY
     Route: 048
     Dates: start: 20071024
  3. BLINDED CELECOXIB [Suspect]
     Indication: OSTEOARTHRITIS
     Dosage: UNK, EVERY DAY
     Route: 048
     Dates: start: 20071024
  4. IBUPROFEN [Suspect]
     Indication: OSTEOARTHRITIS
     Dosage: UNK, EVERY DAY
     Route: 048
     Dates: start: 20071024
  5. NAPROXEN [Suspect]
     Dosage: UNK, EVERY DAY
     Route: 048
     Dates: start: 20071024
  6. NAPROXEN [Suspect]
     Dosage: UNK, EVERY DAY
     Route: 048
     Dates: start: 20090330
  7. BLINDED *PLACEBO [Suspect]
     Dosage: UNK, EVERY DAY
     Route: 048
     Dates: start: 20090330
  8. BLINDED CELECOXIB [Suspect]
     Dosage: UNK, EVERY DAY
     Route: 048
     Dates: start: 20090330
  9. IBUPROFEN [Suspect]
     Dosage: UNK, EVERY DAY
     Route: 048
     Dates: start: 20090330
  10. NAPROXEN [Suspect]
     Dosage: UNK, EVERY DAY
     Route: 048
     Dates: start: 20090330
  11. HYDROCHLOROTHIAZIDE [Concomitant]
     Dosage: UNK
     Route: 048
     Dates: start: 20000101
  12. ENALAPRIL MALEATE [Concomitant]
     Dosage: UNK
     Route: 048
     Dates: start: 20030101
  13. MULTI-VITAMINS [Concomitant]
     Dosage: UNK
     Route: 048
     Dates: start: 19970101
  14. FISH OIL [Concomitant]
     Dosage: UNK
     Route: 048
     Dates: start: 20020101
  15. CALCIUM [Concomitant]
     Dosage: UNK
     Route: 048
     Dates: start: 20020101
  16. GLUCOSAMINE W/CHONDROITIN SULFATES [Concomitant]
     Dosage: UNK
     Route: 048
     Dates: start: 20070601

REACTIONS (1)
  - DEVICE FAILURE [None]
